FAERS Safety Report 15022613 (Version 1)
Quarter: 2018Q2

REPORT INFORMATION
  Report Type: Report from Study
  Country: US (occurrence: US)
  Receive Date: 20180618
  Receipt Date: 20180618
  Transmission Date: 20180711
  Serious: Yes (Life-Threatening, Hospitalization, Other)
  Sender: FDA-Public Use
  Company Number: US-GILEAD-2018-0341380

PATIENT
  Age: 67 Year
  Sex: Male
  Weight: 72.56 kg

DRUGS (31)
  1. UPTRAVI [Concomitant]
     Active Substance: SELEXIPAG
  2. MAGNESIUM SULFATE. [Concomitant]
     Active Substance: MAGNESIUM SULFATE
  3. BUMEX [Concomitant]
     Active Substance: BUMETANIDE
  4. AMBRISENTAN [Suspect]
     Active Substance: AMBRISENTAN
     Indication: PULMONARY ARTERIAL HYPERTENSION
     Dosage: 10 MG, QD
     Route: 048
     Dates: start: 201610
  5. VELETRI [Concomitant]
     Active Substance: EPOPROSTENOL
  6. LIPITOR [Concomitant]
     Active Substance: ATORVASTATIN CALCIUM
  7. CLOPIDROGEL SANDOZ [Concomitant]
     Active Substance: CLOPIDOGREL BISULFATE
  8. POTASSIUM CHLORIDE. [Concomitant]
     Active Substance: POTASSIUM CHLORIDE
  9. FLONASE                            /00908302/ [Concomitant]
     Active Substance: MOMETASONE FUROATE
  10. EPLERENONE. [Concomitant]
     Active Substance: EPLERENONE
  11. TYVASO [Concomitant]
     Active Substance: TREPROSTINIL
  12. TEMOVATE [Concomitant]
     Active Substance: CLOBETASOL PROPIONATE
  13. KLONOPIN [Concomitant]
     Active Substance: CLONAZEPAM
  14. VOLTAREN [Concomitant]
     Active Substance: DICLOFENAC SODIUM
  15. OCEAN SALINE NASAL SPRAY [Concomitant]
     Active Substance: SODIUM CHLORIDE
  16. ADCIRCA [Concomitant]
     Active Substance: TADALAFIL
  17. NEURONTIN [Concomitant]
     Active Substance: GABAPENTIN
  18. HEPARIN [Concomitant]
     Active Substance: HEPARIN SODIUM
  19. POTASSIUM PHOSPHATE MONOBASIC [Concomitant]
     Active Substance: POTASSIUM PHOSPHATE, MONOBASIC
  20. TADALAFIL [Concomitant]
     Active Substance: TADALAFIL
  21. NORCO [Concomitant]
     Active Substance: ACETAMINOPHEN\HYDROCODONE BITARTRATE
  22. ASPIRIN 81 [Concomitant]
     Active Substance: ASPIRIN
  23. PLAVIX [Concomitant]
     Active Substance: CLOPIDOGREL BISULFATE
  24. INSPRA                             /01362602/ [Concomitant]
     Active Substance: MONTELUKAST SODIUM
  25. MAGNESIUM [Concomitant]
     Active Substance: MAGNESIUM
  26. OXYGEN. [Concomitant]
     Active Substance: OXYGEN
  27. TESSALON [Concomitant]
     Active Substance: BENZONATATE
  28. NEXIUM [Concomitant]
     Active Substance: ESOMEPRAZOLE MAGNESIUM
  29. CALCIUM CHLORIDE. [Concomitant]
     Active Substance: CALCIUM CHLORIDE
  30. SODIUM PHOSPHATE [Concomitant]
     Active Substance: SODIUM PHOSPHATE
  31. BACTROBAN [Concomitant]
     Active Substance: MUPIROCIN\MUPIROCIN CALCIUM

REACTIONS (7)
  - Fatigue [Not Recovered/Not Resolved]
  - Respiratory failure [Unknown]
  - Fluid overload [Not Recovered/Not Resolved]
  - Oedema peripheral [Unknown]
  - Dyspnoea [Not Recovered/Not Resolved]
  - Right ventricular failure [Unknown]
  - Pulmonary hypertension [Recovered/Resolved]

NARRATIVE: CASE EVENT DATE: 201803
